FAERS Safety Report 21238044 (Version 2)
Quarter: 2025Q4

REPORT INFORMATION
  Report Type: Report from Study
  Country: EG (occurrence: EG)
  Receive Date: 20220822
  Receipt Date: 20251110
  Transmission Date: 20260118
  Serious: Yes (Hospitalization)
  Sender: AMGEN
  Company Number: EG-AMGEN-EGYSL2022102151

PATIENT
  Age: 66 Year
  Sex: Male

DRUGS (2)
  1. VECTIBIX [Suspect]
     Active Substance: PANITUMUMAB
     Indication: Colorectal cancer
     Dosage: UNK
     Route: 065
     Dates: start: 20220201, end: 20220706
  2. VECTIBIX [Suspect]
     Active Substance: PANITUMUMAB
     Dosage: UNK
     Route: 065
     Dates: start: 2025

REACTIONS (5)
  - Blood pressure increased [Not Recovered/Not Resolved]
  - Blood glucose increased [Not Recovered/Not Resolved]
  - Electric shock sensation [Not Recovered/Not Resolved]
  - Rash pustular [Not Recovered/Not Resolved]
  - Diarrhoea [Not Recovered/Not Resolved]

NARRATIVE: CASE EVENT DATE: 20220101
